FAERS Safety Report 10743315 (Version 1)
Quarter: 2015Q1

REPORT INFORMATION
  Report Type: Other
  Country: GB (occurrence: GB)
  Receive Date: 20150127
  Receipt Date: 20150127
  Transmission Date: 20150721
  Serious: Yes (Hospitalization, Other)
  Sender: FDA-Public Use
  Company Number: GB-MYLANLABS-2015M1001228

PATIENT

DRUGS (7)
  1. DIAZEPAM. [Suspect]
     Active Substance: DIAZEPAM
     Dosage: 12 MILLIGRAM DAILY;
     Route: 065
     Dates: start: 2014, end: 2014
  2. DIAZEPAM. [Suspect]
     Active Substance: DIAZEPAM
     Dosage: UNK
  3. ASPIRIN. [Concomitant]
     Active Substance: ASPIRIN
     Dosage: UNK
     Route: 065
  4. DIAZEPAM. [Suspect]
     Active Substance: DIAZEPAM
     Dosage: 8 MILLIGRAM DAILY;
     Route: 065
     Dates: start: 2014, end: 2014
  5. DIAZEPAM. [Suspect]
     Active Substance: DIAZEPAM
     Dosage: 3 MILLIGRAM DAILY;
     Route: 065
     Dates: start: 2014, end: 2014
  6. TEMAZEPAM. [Suspect]
     Active Substance: TEMAZEPAM
     Dosage: UNK (TOOK FOR AROUND TWO MONTHS)
     Route: 065
     Dates: start: 2014, end: 2014
  7. LEVETIRACETAM. [Concomitant]
     Active Substance: LEVETIRACETAM
     Dosage: 3000 MILLIGRAM DAILY; 3 X 500 MG TABLETS TWICE A DAY (MORNING AND EVENING)

REACTIONS (16)
  - Weight decreased [Unknown]
  - Condition aggravated [Unknown]
  - Palpitations [Unknown]
  - Sleep disorder [Unknown]
  - Diarrhoea [Unknown]
  - Stress [Unknown]
  - Eating disorder [Unknown]
  - Haemoptysis [Unknown]
  - Seizure [Unknown]
  - Throat tightness [Unknown]
  - Madarosis [Unknown]
  - Alopecia [Unknown]
  - Memory impairment [Unknown]
  - Visual impairment [Unknown]
  - Abdominal discomfort [Unknown]
  - Onychomadesis [Unknown]

NARRATIVE: CASE EVENT DATE: 2014
